FAERS Safety Report 22118864 (Version 1)
Quarter: 2023Q1

REPORT INFORMATION
  Report Type: Spontaneous
  Country: US (occurrence: None)
  Receive Date: 20230321
  Receipt Date: 20230321
  Transmission Date: 20230417
  Serious: Yes (Hospitalization, Other)
  Sender: FDA-Public Use
  Company Number: 2023A061029

PATIENT
  Age: 72 Year

DRUGS (2)
  1. CALQUENCE [Suspect]
     Active Substance: ACALABRUTINIB
     Indication: Chronic lymphocytic leukaemia
     Route: 048
     Dates: start: 2021
  2. CALQUENCE [Suspect]
     Active Substance: ACALABRUTINIB
     Route: 048
     Dates: start: 202303

REACTIONS (15)
  - Back pain [Unknown]
  - Breast cancer [Unknown]
  - Malignant neoplasm progression [Unknown]
  - Hypoacusis [Unknown]
  - Mitochondrial cytopathy [Unknown]
  - Product use issue [Unknown]
  - Laboratory test abnormal [Unknown]
  - Back disorder [Unknown]
  - White blood cell count increased [Unknown]
  - Headache [Unknown]
  - Malaise [Unknown]
  - Antibody test abnormal [Unknown]
  - Adverse reaction [Unknown]
  - Therapeutic response decreased [Unknown]
  - Chromaturia [Unknown]

NARRATIVE: CASE EVENT DATE: 20210101
